FAERS Safety Report 16182603 (Version 3)
Quarter: 2022Q2

REPORT INFORMATION
  Report Type: Spontaneous
  Country: GB (occurrence: GB)
  Receive Date: 20190411
  Receipt Date: 20220511
  Transmission Date: 20220721
  Serious: Yes (Hospitalization, Other)
  Sender: FDA-Public Use
  Company Number: GB-AXELLIA-002386

PATIENT
  Age: 60 Year
  Sex: Female

DRUGS (18)
  1. DAPTOMYCIN [Suspect]
     Active Substance: DAPTOMYCIN
     Indication: Enterococcal infection
     Dosage: 4 MILLIGRAM/KILOGRAM, ONCE ONLY
     Route: 042
  2. ERYTHROPOIETIN [Suspect]
     Active Substance: ERYTHROPOIETIN
     Indication: Anaemia macrocytic
  3. ASPIRIN [Concomitant]
     Active Substance: ASPIRIN
  4. SIMVASTATIN [Concomitant]
     Active Substance: SIMVASTATIN
     Indication: Pulmonary embolism
  5. METFORMIN [Concomitant]
     Active Substance: METFORMIN HYDROCHLORIDE
     Indication: Diabetes mellitus
  6. LEFLUNOMIDE [Concomitant]
     Active Substance: LEFLUNOMIDE
     Indication: Rheumatoid arthritis
  7. HYDROXYCHLOROQUINE [Concomitant]
     Active Substance: HYDROXYCHLOROQUINE
  8. FOLIC ACID [Concomitant]
     Active Substance: FOLIC ACID
  9. SOLIFENACIN [Concomitant]
     Active Substance: SOLIFENACIN
  10. CHLORPHENIRAMINE MALEATE [Concomitant]
     Active Substance: CHLORPHENIRAMINE MALEATE
  11. OMEPRAZOLE [Concomitant]
     Active Substance: OMEPRAZOLE
  12. RANITIDINE [Concomitant]
     Active Substance: RANITIDINE
  13. QUININE SULFATE [Concomitant]
     Active Substance: QUININE SULFATE
  14. COCODAMOL [Concomitant]
     Active Substance: ACETAMINOPHEN\CODEINE PHOSPHATE
  15. PREGABALIN [Concomitant]
     Active Substance: PREGABALIN
  16. TRAMADOL [Concomitant]
     Active Substance: TRAMADOL
  17. CITALOPRAM [Concomitant]
     Active Substance: CITALOPRAM HYDROBROMIDE
  18. PIPERACILLIN SODIUM\TAZOBACTAM SODIUM [Concomitant]
     Active Substance: PIPERACILLIN SODIUM\TAZOBACTAM SODIUM
     Indication: Urinary tract infection enterococcal

REACTIONS (1)
  - Posterior reversible encephalopathy syndrome [Recovered/Resolved]
